FAERS Safety Report 14371938 (Version 4)
Quarter: 2019Q2

REPORT INFORMATION
  Report Type: Spontaneous
  Country: PL (occurrence: PL)
  Receive Date: 20180110
  Receipt Date: 20190522
  Transmission Date: 20190711
  Serious: Yes (Hospitalization)
  Sender: FDA-Public Use
  Company Number: PL-MYLANLABS-2018M1001934

PATIENT
  Age: 12 Year
  Sex: Female
  Weight: 32 kg

DRUGS (22)
  1. CEFUROXIME. [Suspect]
     Active Substance: CEFUROXIME
     Indication: ULCER
  2. CORNEREGEL [Suspect]
     Active Substance: DEXPANTHENOL
     Indication: ULCER
  3. ERYTHROMYCIN. [Suspect]
     Active Substance: ERYTHROMYCIN
     Indication: ULCER
  4. DEXAVEN [Suspect]
     Active Substance: DEXAMETHASONE
     Indication: ULCER
  5. TOBREX [Suspect]
     Active Substance: TOBRAMYCIN
     Indication: KERATITIS
     Dosage: UNK
     Route: 061
     Dates: start: 2013
  6. CORNEREGEL [Suspect]
     Active Substance: DEXPANTHENOL
     Indication: KERATITIS
     Dosage: UNK
     Route: 061
     Dates: start: 2013
  7. TREHALOSE [Suspect]
     Active Substance: TREHALOSE
     Indication: KERATITIS
     Dosage: UNK
     Route: 061
  8. DEXAVEN [Suspect]
     Active Substance: DEXAMETHASONE
     Indication: KERATITIS
     Dosage: UNK
     Dates: start: 2013
  9. OPATANOL [Suspect]
     Active Substance: OLOPATADINE
     Indication: KERATITIS
     Dosage: UNK
     Route: 061
     Dates: start: 2013
  10. TREHALOSE [Suspect]
     Active Substance: TREHALOSE
     Indication: ULCER
  11. ERYTHROMYCIN. [Suspect]
     Active Substance: ERYTHROMYCIN
     Indication: KERATITIS
     Dosage: UNK
     Route: 061
  12. CEFUROXIME. [Suspect]
     Active Substance: CEFUROXIME
     Indication: KERATITIS
     Dosage: UNK
     Route: 042
  13. DIFADOL [Suspect]
     Active Substance: DICLOFENAC SODIUM
     Indication: KERATITIS
     Dosage: UNK
  14. DIFADOL [Suspect]
     Active Substance: DICLOFENAC SODIUM
     Indication: ULCER
  15. LOTEMAX [Suspect]
     Active Substance: LOTEPREDNOL ETABONATE
     Indication: KERATITIS
     Dosage: UNK
     Route: 061
     Dates: start: 2013
  16. OFTAQUIX [Suspect]
     Active Substance: LEVOFLOXACIN
     Indication: ULCER
  17. INDOCOLLYRE [Suspect]
     Active Substance: INDOMETHACIN
     Indication: ULCER
  18. OFTAQUIX [Suspect]
     Active Substance: LEVOFLOXACIN
     Indication: KERATITIS
     Dosage: UNK
     Route: 061
     Dates: start: 2013
  19. OPATANOL [Suspect]
     Active Substance: OLOPATADINE
     Indication: ULCER
  20. TOBREX [Suspect]
     Active Substance: TOBRAMYCIN
     Indication: ULCER
  21. INDOCOLLYRE [Suspect]
     Active Substance: INDOMETHACIN
     Indication: KERATITIS
     Dosage: UNK
     Route: 061
  22. LOTEMAX [Suspect]
     Active Substance: LOTEPREDNOL ETABONATE
     Indication: ULCER

REACTIONS (3)
  - Keratitis [Recovering/Resolving]
  - Disease progression [Recovering/Resolving]
  - Drug ineffective [Unknown]
